FAERS Safety Report 7392492-3 (Version None)
Quarter: 2011Q2

REPORT INFORMATION
  Report Type: 
  Country: None (occurrence: None)
  Receive Date: 20110404
  Receipt Date: 20110329
  Transmission Date: 20111010
  Serious: Yes (Hospitalization)
  Sender: FDA-Public Use
  Company Number: US-ELI_LILLY_AND_COMPANY-US201103008492

PATIENT
  Sex: Female
  Weight: 68.481 kg

DRUGS (13)
  1. GEMCITABINE HYDROCHLORIDE [Suspect]
     Indication: BREAST CANCER METASTATIC
     Dosage: 1936 MG, UNK
     Route: 042
     Dates: start: 20100928, end: 20110324
  2. CARBOPLATIN [Suspect]
     Indication: BREAST CANCER METASTATIC
     Dosage: 167 MG, UNK
     Route: 042
     Dates: start: 20100928, end: 20110324
  3. NEULASTA [Concomitant]
     Dosage: UNK
     Dates: start: 20110325
  4. CALCIUM +VIT D [Concomitant]
     Indication: SUPPLEMENTATION THERAPY
     Dosage: 500 MG, BID
     Dates: start: 20101123
  5. DOXYCYCLINE HYCLATE [Concomitant]
     Indication: INFECTION
     Dosage: UNK, BID ONE TAB
     Dates: start: 20110301
  6. MAGNESIUM GLUCONATE [Concomitant]
     Indication: SUPPLEMENTATION THERAPY
     Dosage: UNK, BID ONE
     Route: 048
     Dates: start: 20110318
  7. NADOLOL [Concomitant]
     Indication: ARRHYTHMIA
     Dosage: 40 MG, EACH MORNING
     Dates: start: 20091013
  8. PANITUMUMAB [Suspect]
     Indication: BREAST CANCER METASTATIC
     Dosage: 409 MG, UNK
     Route: 042
     Dates: start: 20100928, end: 20110324
  9. ALBUTEROL [Concomitant]
     Dosage: UNK, PRN
     Dates: start: 20110118
  10. MACROBID [Concomitant]
     Dosage: 100 MG, BID
     Route: 048
     Dates: start: 20110324
  11. KAPIDEX [Concomitant]
     Indication: REFLUX GASTRITIS
     Dosage: 60 MG, EACH MORNING
     Route: 048
     Dates: start: 20091013
  12. FLEXERIL [Concomitant]
     Indication: MUSCLE SPASMS
     Dosage: 10 MG, EACH MORNING
     Dates: start: 20101228
  13. PERCOCET [Concomitant]
     Indication: PAIN
     Dosage: UNK, PRN 1-2
     Dates: start: 20110210

REACTIONS (2)
  - PNEUMONIA [None]
  - CHRONIC OBSTRUCTIVE PULMONARY DISEASE [None]
